FAERS Safety Report 4276631-9 (Version None)
Quarter: 2004Q1

REPORT INFORMATION
  Report Type: 
  Country: None (occurrence: None)
  Receive Date: 20040120
  Receipt Date: 20040107
  Transmission Date: 20041129
  Serious: Yes (Other)
  Sender: FDA-Public Use
  Company Number: 22603

PATIENT
  Age: 43 Year
  Sex: Female

DRUGS (2)
  1. ALDARA [Suspect]
     Indication: SKIN PAPILLOMA
     Dosage: 1 UNSPECIFIED (1 IN 1 DAY(S)), TOPICAL
     Route: 061
     Dates: start: 20010301, end: 20010501
  2. VIVELLE [Concomitant]

REACTIONS (1)
  - RHEUMATOID ARTHRITIS [None]
